FAERS Safety Report 6073934-2 (Version None)
Quarter: 2009Q1

REPORT INFORMATION
  Report Type: 
  Country: None (occurrence: None)
  Receive Date: 20090211
  Receipt Date: 20090130
  Transmission Date: 20090719
  Serious: Yes (Hospitalization)
  Sender: FDA-Public Use
  Company Number: PHHY2009ES03460

PATIENT
  Age: 75 Year
  Sex: Male
  Weight: 84 kg

DRUGS (7)
  1. DIOVAN HCT [Suspect]
     Indication: ESSENTIAL HYPERTENSION
     Dosage: ONCE DAILY
     Dates: start: 20070101
  2. TRILEPTAL [Suspect]
     Indication: EPILEPSY
     Dosage: 1200 MG DAILY
     Route: 048
     Dates: start: 20080413, end: 20081128
  3. AMLODIPINE [Concomitant]
     Indication: ESSENTIAL HYPERTENSION
     Dosage: UNK
     Dates: start: 20060101
  4. ADIRO [Concomitant]
     Indication: THROMBOSIS PROPHYLAXIS
     Dosage: 100 MG DAILY
     Route: 048
     Dates: start: 20000101
  5. CORONUR [Concomitant]
     Indication: ESSENTIAL HYPERTENSION
     Dosage: 20 MG DAILY
     Route: 048
     Dates: start: 20081001
  6. DIAMICRON [Concomitant]
     Indication: TYPE 2 DIABETES MELLITUS
     Dosage: 240 MG, TID
     Dates: start: 20030101
  7. PHENYTOIN SODIUM CAP [Concomitant]
     Indication: EPILEPSY
     Dosage: 100 MG, TID
     Route: 048
     Dates: start: 19980101

REACTIONS (2)
  - CARDIAC ARREST [None]
  - SYNCOPE [None]
